FAERS Safety Report 25179598 (Version 1)
Quarter: 2025Q2

REPORT INFORMATION
  Report Type: Spontaneous
  Country: US (occurrence: None)
  Receive Date: 20250408
  Receipt Date: 20250408
  Transmission Date: 20250716
  Serious: Yes (Death, Hospitalization, Disabling)
  Sender: FDA-CTU
  Company Number: None

PATIENT
  Age: 97 Year
  Sex: Female
  Weight: 56.25 kg

DRUGS (1)
  1. TYRVAYA [Suspect]
     Active Substance: VARENICLINE TARTRATE
     Indication: Dry eye

REACTIONS (4)
  - Facial pain [None]
  - Vertigo [None]
  - Cerebrovascular accident [None]
  - Trigeminal neuralgia [None]

NARRATIVE: CASE EVENT DATE: 20240923
